FAERS Safety Report 10759700 (Version 2)
Quarter: 2015Q2

REPORT INFORMATION
  Report Type: Report from Study
  Country: DE (occurrence: DE)
  Receive Date: 20150203
  Receipt Date: 20150404
  Transmission Date: 20150821
  Serious: Yes (Hospitalization)
  Sender: FDA-Public Use
  Company Number: PHHY2015DE011510

PATIENT
  Weight: 75 kg

DRUGS (1)
  1. INTERFERON BETA-1B [Suspect]
     Active Substance: INTERFERON BETA-1B
     Indication: MULTIPLE SCLEROSIS
     Dosage: 250 UG/ML, UNK
     Route: 058
     Dates: start: 20140408, end: 20140722

REACTIONS (1)
  - Local reaction [Recovered/Resolved]

NARRATIVE: CASE EVENT DATE: 20140701
